FAERS Safety Report 5467235-0 (Version None)
Quarter: 2007Q3

REPORT INFORMATION
  Report Type: 
  Country: None (occurrence: None)
  Receive Date: 20070920
  Receipt Date: 20070907
  Transmission Date: 20080115
  Serious: Yes (Death, Hospitalization)
  Sender: FDA-Public Use
  Company Number: SPV1-2007-03343

PATIENT
  Sex: Female

DRUGS (2)
  1. ANAGRELIDE HYDROCHLORIDE [Suspect]
     Indication: ESSENTIAL THROMBOCYTHAEMIA
     Dosage: 1 MG, 2X/DAY: BID, ORAL
     Route: 048
     Dates: start: 20060801, end: 20061001
  2. HYDROXYUREA [Concomitant]

REACTIONS (4)
  - OEDEMA [None]
  - PULMONARY OEDEMA [None]
  - RASH [None]
  - RENAL FAILURE ACUTE [None]
